FAERS Safety Report 12865164 (Version 1)
Quarter: 2016Q4

REPORT INFORMATION
  Report Type: Spontaneous
  Country: US (occurrence: US)
  Receive Date: 20161018
  Receipt Date: 20161018
  Transmission Date: 20170207
  Serious: No
  Sender: FDA-Public Use
  Company Number: None

PATIENT
  Sex: Female
  Weight: 79.9 kg

DRUGS (1)
  1. IMATINIB MESYLATE 400 MG SUN PHARMA [Suspect]
     Active Substance: IMATINIB MESYLATE
     Indication: CHRONIC MYELOID LEUKAEMIA (IN REMISSION)
     Route: 048
     Dates: start: 20150303

REACTIONS (4)
  - Weight increased [None]
  - Peripheral swelling [None]
  - Muscle spasms [None]
  - Increased appetite [None]
